FAERS Safety Report 8165344-9 (Version None)
Quarter: 2012Q1

REPORT INFORMATION
  Report Type: 
  Country: None (occurrence: None)
  Receive Date: 20120222
  Receipt Date: 20120222
  Transmission Date: 20120608
  Serious: No
  Sender: FDA-Public Use
  Company Number: None

PATIENT
  Age: 44 Year
  Sex: Female

DRUGS (2)
  1. OLANZAPINE [Suspect]
     Indication: PSYCHOTIC DISORDER
     Dosage: 5 MG ONE TIME PO (ODT) ORAL DISINTEGRATING TABLET  ONCE
     Route: 048
     Dates: start: 20120203
  2. OLANZAPINE [Suspect]
     Indication: AFFECTIVE DISORDER
     Dosage: 5 MG ONE TIME PO (ODT) ORAL DISINTEGRATING TABLET  ONCE
     Route: 048
     Dates: start: 20120203

REACTIONS (3)
  - TONGUE DISORDER [None]
  - SPEECH DISORDER [None]
  - APHASIA [None]
